FAERS Safety Report 13577980 (Version 1)
Quarter: 2017Q2

REPORT INFORMATION
  Report Type: Spontaneous
  Country: US (occurrence: US)
  Receive Date: 20170524
  Receipt Date: 20170524
  Transmission Date: 20170830
  Serious: Yes (Other)
  Sender: FDA-Public Use
  Company Number: US-OTSUKA-2017_011378

PATIENT
  Sex: Female

DRUGS (6)
  1. REXULTI [Suspect]
     Active Substance: BREXPIPRAZOLE
     Dosage: 2 MG, UNK
     Route: 065
  2. VALIUM [Concomitant]
     Active Substance: DIAZEPAM
     Indication: DISTURBANCE IN ATTENTION
  3. EFFEXOR [Concomitant]
     Active Substance: VENLAFAXINE HYDROCHLORIDE
     Indication: PRODUCT USED FOR UNKNOWN INDICATION
     Dosage: UNK
     Route: 065
  4. REXULTI [Suspect]
     Active Substance: BREXPIPRAZOLE
     Indication: DEPRESSION
     Dosage: 1 MG, UNK
     Route: 065
  5. VALIUM [Concomitant]
     Active Substance: DIAZEPAM
     Indication: CONFUSIONAL STATE
     Dosage: AS NEEDED
     Route: 065
  6. REXULTI [Suspect]
     Active Substance: BREXPIPRAZOLE
     Indication: ADJUVANT THERAPY
     Dosage: 0.5 MG, UNK
     Route: 065
     Dates: start: 2017

REACTIONS (12)
  - Urinary incontinence [Unknown]
  - Disturbance in attention [Unknown]
  - Hunger [Unknown]
  - Confusional state [Unknown]
  - Asthenia [Unknown]
  - Hyperhidrosis [Unknown]
  - Loss of consciousness [Unknown]
  - Fear [Unknown]
  - Thirst [Unknown]
  - Dizziness [Unknown]
  - Abdominal discomfort [Unknown]
  - Pollakiuria [Unknown]
